FAERS Safety Report 7002554-8 (Version None)
Quarter: 2010Q3

REPORT INFORMATION
  Report Type: 
  Country: None (occurrence: None)
  Receive Date: 20100920
  Receipt Date: 20100319
  Transmission Date: 20110219
  Serious: No
  Sender: FDA-Public Use
  Company Number: US-ASTRAZENECA-2010SE12263

PATIENT
  Age: 37 Year
  Sex: Male
  Weight: 117.9 kg

DRUGS (1)
  1. SEROQUEL [Suspect]
     Indication: BIPOLAR DISORDER
     Route: 048
     Dates: start: 20100101

REACTIONS (2)
  - INCREASED APPETITE [None]
  - WEIGHT INCREASED [None]
